FAERS Safety Report 17604237 (Version 8)
Quarter: 2020Q4

REPORT INFORMATION
  Report Type: Report from Study
  Country: None (occurrence: ES)
  Receive Date: 20200331
  Receipt Date: 20201128
  Transmission Date: 20210113
  Serious: Yes (Hospitalization)
  Sender: FDA-Public Use
  Company Number: ES-ABBVIE-20K-144-3344362-00

PATIENT
  Age: 67 Year
  Sex: Male
  Weight: 72 kg

DRUGS (3)
  1. DUODOPA [Suspect]
     Active Substance: CARBIDOPA\LEVODOPA
     Dosage: MORNING DOSE AT 7.5 ML, CONTINUOUS DOSE 4 ML/H
     Route: 050
     Dates: start: 202011, end: 202011
  2. DUODOPA [Suspect]
     Active Substance: CARBIDOPA\LEVODOPA
     Dosage: CONTINUOUS DOSE 4.2 ML/H
     Route: 050
     Dates: start: 202011
  3. DUODOPA [Suspect]
     Active Substance: CARBIDOPA\LEVODOPA
     Indication: PRODUCT USED FOR UNKNOWN INDICATION
     Dosage: MORNING DOSE 10 ML
     Route: 050
     Dates: start: 20190606, end: 202011

REACTIONS (8)
  - Pneumonia [Recovered/Resolved]
  - Device issue [Not Recovered/Not Resolved]
  - Weight decreased [Recovering/Resolving]
  - Psychiatric symptom [Recovered/Resolved]
  - On and off phenomenon [Unknown]
  - Freezing phenomenon [Recovering/Resolving]
  - Coronavirus test positive [Recovered/Resolved]
  - Mobility decreased [Not Recovered/Not Resolved]

NARRATIVE: CASE EVENT DATE: 2020
